FAERS Safety Report 20538472 (Version 1)
Quarter: 2022Q1

REPORT INFORMATION
  Report Type: Spontaneous
  Country: FR (occurrence: FR)
  Receive Date: 20220302
  Receipt Date: 20220302
  Transmission Date: 20220423
  Serious: Yes (Hospitalization)
  Sender: FDA-Public Use
  Company Number: None

PATIENT
  Age: 38 Year
  Sex: Female
  Weight: 108 kg

DRUGS (3)
  1. FENTANYL [Suspect]
     Active Substance: FENTANYL
     Indication: Product used for unknown indication
     Route: 062
     Dates: start: 2009, end: 20210712
  2. FENTANYL [Suspect]
     Active Substance: FENTANYL
     Route: 062
     Dates: start: 200908, end: 20210712
  3. ACTIQ [Suspect]
     Active Substance: FENTANYL CITRATE
     Indication: Product used for unknown indication
     Route: 062
     Dates: start: 20090101, end: 20210712

REACTIONS (4)
  - Drug abuse [Recovering/Resolving]
  - Drug dependence [Recovering/Resolving]
  - Behaviour disorder [Recovering/Resolving]
  - Withdrawal syndrome [Recovering/Resolving]

NARRATIVE: CASE EVENT DATE: 20090101
